FAERS Safety Report 8374636-X (Version None)
Quarter: 2012Q2

REPORT INFORMATION
  Report Type: 
  Country: None (occurrence: None)
  Receive Date: 20120521
  Receipt Date: 20111221
  Transmission Date: 20120825
  Serious: No
  Sender: FDA-Public Use
  Company Number: US-ASTRAZENECA-2012SE00482

PATIENT
  Age: 68 Year
  Sex: Female

DRUGS (3)
  1. PROTHOL [Concomitant]
  2. SYNTHROID [Concomitant]
  3. PRILOSEC OTC [Suspect]
     Route: 048

REACTIONS (3)
  - PRODUCT BLISTER PACKAGING ISSUE [None]
  - INJURY [None]
  - PAIN IN EXTREMITY [None]
